FAERS Safety Report 20541398 (Version 1)
Quarter: 2022Q1

REPORT INFORMATION
  Report Type: Spontaneous
  Country: FR (occurrence: FR)
  Receive Date: 20220302
  Receipt Date: 20220302
  Transmission Date: 20220423
  Serious: Yes (Death)
  Sender: FDA-Public Use
  Company Number: FR-JNJFOC-20211002179

PATIENT
  Sex: Female

DRUGS (4)
  1. PALIPERIDONE PALMITATE [Suspect]
     Active Substance: PALIPERIDONE PALMITATE
     Indication: Product used for unknown indication
     Route: 030
  2. PALIPERIDONE PALMITATE [Suspect]
     Active Substance: PALIPERIDONE PALMITATE
  3. PALIPERIDONE PALMITATE [Suspect]
     Active Substance: PALIPERIDONE PALMITATE
  4. RISPERDAL [Concomitant]
     Active Substance: RISPERIDONE
     Indication: Behaviour disorder
     Dosage: FOR SEVERAL YEARS

REACTIONS (4)
  - Haemorrhage [Fatal]
  - Intracranial aneurysm [Fatal]
  - Off label use [Unknown]
  - Product use issue [Unknown]
